FAERS Safety Report 5096622-8 (Version None)
Quarter: 2006Q3

REPORT INFORMATION
  Report Type: 
  Country: None (occurrence: None)
  Receive Date: 20060831
  Receipt Date: 20060816
  Transmission Date: 20061208
  Serious: Yes (Hospitalization)
  Sender: FDA-Public Use
  Company Number: PHNU2006DE02820

PATIENT
  Age: 78 Year
  Sex: Female

DRUGS (1)
  1. VISUDYNE [Suspect]
     Indication: MACULAR DEGENERATION
     Dates: start: 20060815, end: 20060815

REACTIONS (4)
  - ANGINA PECTORIS [None]
  - BACK PAIN [None]
  - BLOOD PRESSURE INCREASED [None]
  - HEART RATE INCREASED [None]
